FAERS Safety Report 16237563 (Version 1)
Quarter: 2019Q2

REPORT INFORMATION
  Report Type: Spontaneous
  Country: US (occurrence: US)
  Receive Date: 20190424
  Receipt Date: 20190424
  Transmission Date: 20190711
  Serious: Yes (Death)
  Sender: FDA-Public Use
  Company Number: None

PATIENT
  Age: 81 Year
  Sex: Male

DRUGS (9)
  1. LOSARTAN. [Concomitant]
     Active Substance: LOSARTAN
  2. ZYTIGA [Suspect]
     Active Substance: ABIRATERONE ACETATE
     Indication: PROSTATE CANCER
     Route: 048
     Dates: start: 20180331
  3. SIMVASTATIN. [Concomitant]
     Active Substance: SIMVASTATIN
  4. OMPERAZOLE [Concomitant]
     Active Substance: OMEPRAZOLE
  5. WARFARIN [Concomitant]
     Active Substance: WARFARIN
  6. LATANOPROST. [Concomitant]
     Active Substance: LATANOPROST
  7. FEROSUL [Concomitant]
  8. AMLODIPINE [Concomitant]
     Active Substance: AMLODIPINE BESYLATE
  9. PREDNISONE. [Concomitant]
     Active Substance: PREDNISONE

REACTIONS (1)
  - Death [None]
